FAERS Safety Report 15612389 (Version 1)
Quarter: 2018Q4

REPORT INFORMATION
  Report Type: Spontaneous
  Country: FR (occurrence: FR)
  Receive Date: 20181113
  Receipt Date: 20181113
  Transmission Date: 20190205
  Serious: Yes (Other)
  Sender: FDA-Public Use
  Company Number: FR-MYLANLABS-2018M1084372

PATIENT
  Age: 63 Year
  Sex: Female

DRUGS (12)
  1. DOXORUBICIN [Suspect]
     Active Substance: DOXORUBICIN
     Route: 065
     Dates: start: 201411
  2. DOXORUBICIN [Suspect]
     Active Substance: DOXORUBICIN
     Indication: OVARIAN CANCER
     Route: 065
     Dates: start: 201405
  3. CARBOPLATIN. [Suspect]
     Active Substance: CARBOPLATIN
     Indication: OVARIAN CANCER
     Dosage: AUC 6 ;6 CYCLES
     Route: 065
     Dates: start: 2012
  4. CARBOPLATIN. [Suspect]
     Active Substance: CARBOPLATIN
     Dosage: ADMINISTERED ON DAYS 1 AND 8, CONTINUED FOR 6 CYCLES AT A 20% REDUCED DOSE AND THEN STOPPED
     Route: 065
     Dates: start: 201701, end: 201706
  5. BEVACIZUMAB. [Suspect]
     Active Substance: BEVACIZUMAB
     Indication: OVARIAN CANCER
     Dosage: DURING CYCLE 3, 4 AND 5
     Route: 065
     Dates: start: 2012
  6. GEMCITABINE [Suspect]
     Active Substance: GEMCITABINE\GEMCITABINE HYDROCHLORIDE
     Dosage: ADMINISTERED ON DAYS 1 AND 8, CONTINUED FOR 6 CYCLES AT A 20% REDUCED DOSE AND THEN STOPPED
     Route: 065
     Dates: start: 201701, end: 201706
  7. PACLITAXEL. [Suspect]
     Active Substance: PACLITAXEL
     Indication: OVARIAN CANCER
     Dosage: DURING CYCLE 1, 2 AND 6
     Route: 065
     Dates: start: 2012
  8. GEMCITABINE [Suspect]
     Active Substance: GEMCITABINE\GEMCITABINE HYDROCHLORIDE
     Indication: OVARIAN CANCER
     Dosage: ADMINISTERED ON DAYS 1 AND 8, FOR 6 CYCLES.
     Route: 065
     Dates: start: 201508, end: 201512
  9. CARBOPLATIN. [Suspect]
     Active Substance: CARBOPLATIN
     Dosage: AUC 4; SIX CYCLES ADMINISTERED ON DAYS 1 AND 8
     Dates: start: 201508, end: 201512
  10. TRABECTEDIN [Suspect]
     Active Substance: TRABECTEDIN
     Indication: OVARIAN CANCER
     Route: 065
     Dates: start: 201405
  11. TRABECTEDIN [Suspect]
     Active Substance: TRABECTEDIN
     Route: 065
     Dates: start: 201411
  12. APREPITANT. [Concomitant]
     Active Substance: APREPITANT
     Indication: PRODUCT USED FOR UNKNOWN INDICATION
     Dosage: DAY 3-7
     Route: 065
     Dates: start: 201411

REACTIONS (13)
  - Lung disorder [Unknown]
  - Escherichia infection [Recovered/Resolved]
  - Asthenia [Unknown]
  - Neuropathy peripheral [Unknown]
  - Hepatotoxicity [Recovered/Resolved]
  - Alopecia [Unknown]
  - Drug hypersensitivity [Unknown]
  - Pneumonia [Unknown]
  - Thrombocytopenia [Unknown]
  - Anaemia [Unknown]
  - Lung infection [Unknown]
  - Nausea [Unknown]
  - Neutropenia [Unknown]
